FAERS Safety Report 6061137-7 (Version None)
Quarter: 2009Q1

REPORT INFORMATION
  Report Type: 
  Country: None (occurrence: None)
  Receive Date: 20090202
  Receipt Date: 20090128
  Transmission Date: 20090719
  Serious: Yes (Other)
  Sender: FDA-Public Use
  Company Number: CH-BIOGENIDEC-2008BI021958

PATIENT
  Age: 28 Year
  Sex: Male

DRUGS (1)
  1. TYSABRI [Suspect]
     Indication: RELAPSING-REMITTING MULTIPLE SCLEROSIS
     Route: 042
     Dates: start: 20071015, end: 20080730

REACTIONS (6)
  - EMOTIONAL DISORDER [None]
  - EYE INFECTION TOXOPLASMAL [None]
  - RETINAL SCAR [None]
  - SCOTOMA [None]
  - STRESS [None]
  - VESTIBULAR DISORDER [None]
